FAERS Safety Report 10387892 (Version 2)
Quarter: 2014Q3

REPORT INFORMATION
  Report Type: Spontaneous
  Country: JP (occurrence: JP)
  Receive Date: 20140815
  Receipt Date: 20140907
  Transmission Date: 20150326
  Serious: Yes (Death, Other)
  Sender: FDA-Public Use
  Company Number: PHHY2013JP160909

PATIENT
  Age: 61 Year
  Sex: Male

DRUGS (7)
  1. GLIVEC [Suspect]
     Active Substance: IMATINIB MESYLATE
     Indication: BLAST CRISIS IN MYELOGENOUS LEUKAEMIA
     Dosage: 400 MG, DAILY
  2. FUROSEMIDE. [Concomitant]
     Active Substance: FUROSEMIDE
  3. POTASSIUM CITRATE. [Concomitant]
     Active Substance: POTASSIUM CITRATE
  4. ALLOPURINOL. [Concomitant]
     Active Substance: ALLOPURINOL
  5. ROXATIDINE ACETATE [Concomitant]
     Active Substance: ROXATIDINE ACETATE
  6. GLIVEC [Suspect]
     Active Substance: IMATINIB MESYLATE
     Indication: CHRONIC MYELOID LEUKAEMIA
     Dosage: 600 MG,DAILY
  7. PL [Concomitant]
     Active Substance: ACETAMINOPHEN\CAFFEINE\PROMETHAZINE\SALICYLAMIDE

REACTIONS (14)
  - Speech disorder [Fatal]
  - Brain oedema [Fatal]
  - Brain herniation [Unknown]
  - Platelet count decreased [Unknown]
  - Contusion [Unknown]
  - Movement disorder [Fatal]
  - Paralysis [Fatal]
  - Urinary incontinence [Fatal]
  - Subdural haematoma [Fatal]
  - VIIth nerve paralysis [Fatal]
  - Convulsion [Fatal]
  - Headache [Fatal]
  - Altered state of consciousness [Unknown]
  - Fall [Unknown]
